FAERS Safety Report 15955904 (Version 1)
Quarter: 2019Q1

REPORT INFORMATION
  Report Type: Spontaneous
  Country: GB (occurrence: GB)
  Receive Date: 20190213
  Receipt Date: 20190213
  Transmission Date: 20190417
  Serious: Yes (Hospitalization)
  Sender: FDA-Public Use
  Company Number: GB-TEVA-2019-GB-1009060

PATIENT
  Age: 85 Year
  Sex: Female
  Weight: 74 kg

DRUGS (12)
  1. BRALTUS [Concomitant]
     Active Substance: TIOTROPIUM BROMIDE
     Route: 065
  2. LEVOTHYROXINE. [Concomitant]
     Active Substance: LEVOTHYROXINE
     Route: 065
  3. MEROPENEM. [Concomitant]
     Active Substance: MEROPENEM
     Dosage: 3 GRAM DAILY;
     Route: 042
  4. SALBUTAMOL [Concomitant]
     Active Substance: ALBUTEROL
     Route: 065
  5. SIRDUPLA [Concomitant]
     Active Substance: FLUTICASONE PROPIONATE\SALMETEROL XINAFOATE
     Route: 065
  6. AMINOPHYLLINE. [Suspect]
     Active Substance: AMINOPHYLLINE
     Route: 065
  7. PRAVASTATIN. [Concomitant]
     Active Substance: PRAVASTATIN
     Route: 065
  8. LEVOFLOXACIN. [Suspect]
     Active Substance: LEVOFLOXACIN
     Indication: SEPSIS
     Dosage: 500 MILLIGRAM DAILY;
     Route: 048
     Dates: start: 20190109, end: 20190115
  9. XARELTO [Concomitant]
     Active Substance: RIVAROXABAN
     Route: 065
  10. ALLOPURINOL. [Concomitant]
     Active Substance: ALLOPURINOL
     Route: 065
  11. VERAPAMIL [Concomitant]
     Active Substance: VERAPAMIL HYDROCHLORIDE
     Route: 065
  12. LATANOPROST. [Concomitant]
     Active Substance: LATANOPROST
     Route: 065

REACTIONS (6)
  - Vomiting [Unknown]
  - Feeling abnormal [Not Recovered/Not Resolved]
  - Malaise [Not Recovered/Not Resolved]
  - Tremor [Recovering/Resolving]
  - Toxicity to various agents [Unknown]
  - Potentiating drug interaction [Unknown]

NARRATIVE: CASE EVENT DATE: 20190115
